FAERS Safety Report 24984979 (Version 1)
Quarter: 2025Q1

REPORT INFORMATION
  Report Type: Spontaneous
  Country: FR (occurrence: FR)
  Receive Date: 20250219
  Receipt Date: 20250219
  Transmission Date: 20250409
  Serious: Yes (Death)
  Sender: AMGEN
  Company Number: FR-AMGEN-FRASP2022229857

PATIENT
  Age: 71 Year
  Sex: Female
  Weight: 43.8 kg

DRUGS (1)
  1. LUMAKRAS [Suspect]
     Active Substance: SOTORASIB
     Indication: Non-small cell lung cancer
     Dosage: 8 DOSAGE FORM, QD (120 MG, FILM-COATED TABLET)
     Route: 048
     Dates: start: 20220628, end: 20220712

REACTIONS (6)
  - General physical health deterioration [Fatal]
  - Dizziness [Not Recovered/Not Resolved]
  - Vomiting [Not Recovered/Not Resolved]
  - Fatigue [Not Recovered/Not Resolved]
  - Nausea [Not Recovered/Not Resolved]
  - Abdominal pain [Not Recovered/Not Resolved]

NARRATIVE: CASE EVENT DATE: 20220705
